FAERS Safety Report 9507912 (Version 1)
Quarter: 2013Q3

REPORT INFORMATION
  Report Type: Other
  Country: GB (occurrence: GB)
  Receive Date: 20130909
  Receipt Date: 20130909
  Transmission Date: 20140515
  Serious: Yes (Life-Threatening)
  Sender: FDA-Public Use
  Company Number: GB-TARO PHARMACEUTICALS U.S.A., INC-2013SUN04602

PATIENT
  Age: 65 Year
  Sex: Female
  Weight: 52 kg

DRUGS (9)
  1. WARFARIN [Suspect]
     Indication: AORTIC VALVE REPLACEMENT
     Dosage: UNK
     Route: 048
     Dates: end: 20130814
  2. ASPIRIN [Concomitant]
  3. BUMETANIDE [Concomitant]
  4. FERROUS SULPHATE [Concomitant]
  5. ISOSORBIDE [Concomitant]
  6. LISINOPRIL [Concomitant]
  7. METFORMIN [Concomitant]
  8. PRAVASTATIN [Concomitant]
  9. VITAMIN B COMPLEX STRONG [Concomitant]

REACTIONS (3)
  - Coma scale abnormal [Unknown]
  - Haemorrhage intracranial [Unknown]
  - Headache [Unknown]
